FAERS Safety Report 8933000 (Version 1)
Quarter: 2012Q4

REPORT INFORMATION
  Report Type: Spontaneous
  Country: US (occurrence: None)
  Receive Date: 20121127
  Receipt Date: 20121127
  Transmission Date: 20130627
  Serious: No
  Sender: FDA-Public Use
  Company Number: None

PATIENT
  Age: 83 Year
  Sex: Female

DRUGS (2)
  1. FORTEO [Suspect]
     Indication: CARTILAGE DISORDER
     Route: 058
     Dates: start: 20120611, end: 20120830
  2. FORTEO [Suspect]
     Indication: BONE DISORDER
     Route: 058
     Dates: start: 20120611, end: 20120830

REACTIONS (1)
  - Treatment noncompliance [None]
